FAERS Safety Report 12327889 (Version 1)
Quarter: 2016Q2

REPORT INFORMATION
  Report Type: Spontaneous
  Country: US (occurrence: None)
  Receive Date: 20160502
  Receipt Date: 20160502
  Transmission Date: 20160815
  Serious: Yes (Life-Threatening, Hospitalization)
  Sender: FDA-Public Use
  Company Number: None

PATIENT
  Age: 81 Year
  Sex: Male
  Weight: 86.6 kg

DRUGS (1)
  1. NEBIVOLOL. [Suspect]
     Active Substance: NEBIVOLOL
     Indication: HYPERTENSION
     Dates: start: 20131001, end: 20131226

REACTIONS (6)
  - Bifascicular block [None]
  - Bundle branch block left [None]
  - Bradycardia [None]
  - Blood pressure decreased [None]
  - Electrocardiogram P wave abnormal [None]
  - Hyperkalaemia [None]

NARRATIVE: CASE EVENT DATE: 20131226
